FAERS Safety Report 18677287 (Version 3)
Quarter: 2021Q1

REPORT INFORMATION
  Report Type: Spontaneous
  Country: US (occurrence: US)
  Receive Date: 20201229
  Receipt Date: 20210108
  Transmission Date: 20210419
  Serious: No
  Sender: FDA-Public Use
  Company Number: US-PFIZER INC-2019450699

PATIENT
  Age: 72 Year
  Sex: Male
  Weight: 74.84 kg

DRUGS (4)
  1. VYNDAQEL [Suspect]
     Active Substance: TAFAMIDIS MEGLUMINE
     Dosage: 40 MG, DAILY (2 CAPSULES ON 13OCT2019)
     Route: 048
     Dates: start: 20191013, end: 20191013
  2. VYNDAQEL [Suspect]
     Active Substance: TAFAMIDIS MEGLUMINE
     Dosage: 20 MG, DAILY (1 CAPSULE ON 14OCT2019)
     Route: 048
     Dates: start: 20191014, end: 20191015
  3. VYNDAQEL [Suspect]
     Active Substance: TAFAMIDIS MEGLUMINE
     Indication: AMYLOIDOSIS
     Dosage: 80 MG, DAILY (TAKE 4 CAPSULES PER DAY)
     Route: 048
     Dates: start: 201908
  4. VYNDAQEL [Suspect]
     Active Substance: TAFAMIDIS MEGLUMINE
     Dosage: 80 MG, 1X/DAY(20MG FOUR PILLS)
     Route: 048
     Dates: start: 20201218, end: 20201218

REACTIONS (3)
  - Intentional product use issue [Unknown]
  - Off label use [Unknown]
  - Fluid imbalance [Unknown]

NARRATIVE: CASE EVENT DATE: 20191013
